FAERS Safety Report 16464372 (Version 1)
Quarter: 2019Q3

REPORT INFORMATION
  Report Type: Spontaneous
  Country: US (occurrence: US)
  Receive Date: 20190620
  Receipt Date: 20190620
  Transmission Date: 20191004
  Serious: No
  Sender: FDA-Public Use
  Company Number: None

PATIENT
  Age: 37 Year
  Sex: Female
  Weight: 96.75 kg

DRUGS (1)
  1. CEPHALEXIN. [Suspect]
     Active Substance: CEPHALEXIN
     Indication: BACTERIAL INFECTION
     Dosage: ?          QUANTITY:20 CAPSULE(S);?
     Route: 048
     Dates: start: 20190619, end: 20190620

REACTIONS (7)
  - Dyspnoea [None]
  - Abdominal pain upper [None]
  - Chest pain [None]
  - Pyrexia [None]
  - Chills [None]
  - Speech disorder [None]
  - Pharyngeal swelling [None]

NARRATIVE: CASE EVENT DATE: 20190620
